FAERS Safety Report 8798010 (Version 1)
Quarter: 2012Q4

REPORT INFORMATION
  Report Type: 
  Country: US (occurrence: None)
  Receive Date: 20120918
  Receipt Date: 20120918
  Transmission Date: 20130627
  Serious: No
  Sender: FDA-Public Use
  Company Number: None

PATIENT

DRUGS (1)
  1. IMOGAM RABIES [Suspect]

REACTIONS (2)
  - Incorrect dose administered [None]
  - Product label issue [None]
